FAERS Safety Report 12466716 (Version 1)
Quarter: 2016Q2

REPORT INFORMATION
  Report Type: Spontaneous
  Country: US (occurrence: None)
  Receive Date: 20160614
  Receipt Date: 20160614
  Transmission Date: 20160815
  Serious: Yes (Death)
  Sender: FDA-Public Use
  Company Number: None

PATIENT
  Age: 76 Year
  Sex: Female

DRUGS (9)
  1. TRACLEER [Suspect]
     Active Substance: BOSENTAN
     Indication: PULMONARY ARTERIAL HYPERTENSION
     Route: 048
     Dates: start: 201512, end: 201605
  2. NPH INSULIN [Concomitant]
     Active Substance: INSULIN BEEF
  3. POTASSIUM CHLORIDE. [Concomitant]
     Active Substance: POTASSIUM CHLORIDE
  4. METOLAZONE. [Concomitant]
     Active Substance: METOLAZONE
  5. LORAZEPAM. [Concomitant]
     Active Substance: LORAZEPAM
  6. FUROSEMIDE. [Concomitant]
     Active Substance: FUROSEMIDE
  7. MORPHINE [Concomitant]
     Active Substance: MORPHINE
  8. SPIRONOLACTONE. [Concomitant]
     Active Substance: SPIRONOLACTONE
  9. HALOPERIDOL. [Concomitant]
     Active Substance: HALOPERIDOL

REACTIONS (5)
  - Atrial fibrillation [None]
  - Pupil fixed [None]
  - Pulse absent [None]
  - Blood pressure immeasurable [None]
  - Loss of consciousness [None]

NARRATIVE: CASE EVENT DATE: 20160529
